FAERS Safety Report 5909741-8 (Version None)
Quarter: 2008Q4

REPORT INFORMATION
  Report Type: 
  Country: None (occurrence: None)
  Receive Date: 20081006
  Receipt Date: 20081006
  Transmission Date: 20090506
  Serious: Yes (Hospitalization)
  Sender: FDA-Public Use
  Company Number: None

PATIENT
  Sex: Male
  Weight: 97.7 kg

DRUGS (10)
  1. GLEEVEC [Suspect]
     Indication: PROSTATE CANCER
     Dosage: 300MG QD PO
     Route: 048
     Dates: start: 20080715, end: 20080729
  2. SORAFENIB [Suspect]
     Indication: PROSTATE CANCER
     Dosage: 400MG QD PO
     Route: 048
     Dates: start: 20080715, end: 20080729
  3. CALCITRIOL [Concomitant]
  4. MAGNESIUM OXIDE [Concomitant]
  5. OMEPRAZOLE [Concomitant]
  6. CLONAZEPAM [Concomitant]
  7. CALCIUM SUPPLEMENT [Concomitant]
  8. ALPRAZOLAM [Concomitant]
  9. OXYCONTIN [Concomitant]
  10. XANAX [Concomitant]

REACTIONS (8)
  - ABDOMINAL PAIN [None]
  - GASTROINTESTINAL DISORDER [None]
  - NAUSEA [None]
  - PAIN [None]
  - THROMBOSIS [None]
  - URINARY RETENTION [None]
  - URINARY TRACT INFECTION [None]
  - VOMITING [None]
